FAERS Safety Report 22054436 (Version 1)
Quarter: 2023Q1

REPORT INFORMATION
  Report Type: Spontaneous
  Country: IL (occurrence: IL)
  Receive Date: 20230302
  Receipt Date: 20230302
  Transmission Date: 20230418
  Serious: Yes (Hospitalization, Disabling, Other)
  Sender: FDA-Public Use
  Company Number: IL-MLMSERVICE-20230209-4093307-1

PATIENT
  Age: 62 Year
  Sex: Female

DRUGS (4)
  1. DOCETAXEL [Suspect]
     Active Substance: DOCETAXEL
     Indication: Hormone receptor positive HER2 negative breast cancer
     Dosage: 75 MG/M2, QCY
     Dates: start: 202101, end: 202104
  2. DOCETAXEL [Suspect]
     Active Substance: DOCETAXEL
     Dosage: 75 MG/M2, QCY
     Dates: start: 2021, end: 202104
  3. CYCLOPHOSPHAMIDE [Concomitant]
     Active Substance: CYCLOPHOSPHAMIDE
     Indication: Hormone receptor positive HER2 negative breast cancer
     Dosage: 600 MG/M2, QCY
     Dates: start: 202101
  4. CYCLOPHOSPHAMIDE [Concomitant]
     Active Substance: CYCLOPHOSPHAMIDE
     Dosage: 600 MG/M2, QCY (SECOND COURSE WAS ADMINISTERED 3 WEEKS LATER)
     Dates: start: 2021

REACTIONS (6)
  - Myositis [Recovering/Resolving]
  - Peripheral swelling [Recovering/Resolving]
  - Hyperaesthesia [Recovering/Resolving]
  - Pain in extremity [Recovering/Resolving]
  - Pain [Recovering/Resolving]
  - Oedema peripheral [Recovering/Resolving]

NARRATIVE: CASE EVENT DATE: 20210101
